APPROVED DRUG PRODUCT: TRAVASOL 5.5% IN PLASTIC CONTAINER
Active Ingredient: AMINO ACIDS
Strength: 5.5% (5.5GM/100ML)
Dosage Form/Route: INJECTABLE;INJECTION
Application: N018931 | Product #001
Applicant: BAXTER HEALTHCARE CORP
Approved: Aug 23, 1984 | RLD: No | RS: No | Type: RX